FAERS Safety Report 19703498 (Version 2)
Quarter: 2021Q3

REPORT INFORMATION
  Report Type: Spontaneous
  Country: JP (occurrence: JP)
  Receive Date: 20210816
  Receipt Date: 20210830
  Transmission Date: 20211014
  Serious: Yes (Hospitalization, Other)
  Sender: FDA-Public Use
  Company Number: JP-LUPIN PHARMACEUTICALS INC.-2021-14626

PATIENT
  Sex: Male
  Weight: 6.5 kg

DRUGS (5)
  1. ATROPINE SULFATE. [Suspect]
     Active Substance: ATROPINE SULFATE
     Indication: SALIVARY HYPERSECRETION
     Dosage: 0.09 MILLIGRAM/KILOGRAM, QD
     Route: 048
  2. SCOPOLAMINE [Concomitant]
     Active Substance: SCOPOLAMINE
     Indication: SALIVARY HYPERSECRETION
     Dosage: UNK
     Route: 048
  3. CLONAZEPAM. [Suspect]
     Active Substance: CLONAZEPAM
     Indication: EPILEPSY
     Dosage: UNK
     Route: 065
  4. LEVETIRACETAM. [Suspect]
     Active Substance: LEVETIRACETAM
     Indication: EPILEPSY
     Dosage: UNK
     Route: 065
  5. ATROPINE SULFATE. [Suspect]
     Active Substance: ATROPINE SULFATE
     Dosage: 0.08 MILLIGRAM/KILOGRAM, QD (CONTINUOUS INTRAVENOUS INFUSION)
     Route: 042

REACTIONS (4)
  - Salivary hypersecretion [Recovering/Resolving]
  - Dry mouth [Recovered/Resolved]
  - Dehydration [Recovering/Resolving]
  - Arrhythmia [Recovered/Resolved]
